FAERS Safety Report 15945111 (Version 1)
Quarter: 2019Q1

REPORT INFORMATION
  Report Type: Spontaneous
  Country: FR (occurrence: FR)
  Receive Date: 20190211
  Receipt Date: 20190211
  Transmission Date: 20190417
  Serious: Yes (Hospitalization, Other)
  Sender: FDA-Public Use
  Company Number: FR-SA-2013SA097767

PATIENT
  Age: 57 Year
  Sex: Male
  Weight: 76 kg

DRUGS (5)
  1. EUPANTOL [Suspect]
     Active Substance: PANTOPRAZOLE SODIUM
     Indication: PRODUCT USED FOR UNKNOWN INDICATION
     Dosage: UNK UNK,UNK
     Route: 048
     Dates: start: 20130608, end: 20130618
  2. PIPERACILLIN SODIUM/TAZOBACTAM SODIUM [Suspect]
     Active Substance: PIPERACILLIN SODIUM\TAZOBACTAM SODIUM
     Indication: PNEUMONIA
     Dosage: UNK UNK,UNK
     Route: 041
     Dates: start: 20130615, end: 20130707
  3. CEFOTAXIME SODIUM [Suspect]
     Active Substance: CEFOTAXIME SODIUM
     Indication: PNEUMONIA
     Dosage: UNK UNK,UNK
     Route: 041
     Dates: start: 20130611, end: 20130624
  4. OFLOCET [Suspect]
     Active Substance: OFLOXACIN
     Indication: PNEUMONIA
     Dosage: UNK UNK,UNK
     Route: 048
     Dates: start: 20130611, end: 20130615
  5. OMNIPAQUE [Suspect]
     Active Substance: IOHEXOL
     Indication: SCAN
     Dosage: UNK UNK,UNK
     Route: 042
     Dates: start: 20130609, end: 20130609

REACTIONS (11)
  - Dermatitis exfoliative generalised [Recovered/Resolved]
  - Drug reaction with eosinophilia and systemic symptoms [Recovered/Resolved]
  - Pyrexia [Recovered/Resolved]
  - Eosinophilia [Recovered/Resolved]
  - Aspartate aminotransferase increased [Recovered/Resolved]
  - Alanine aminotransferase increased [Recovered/Resolved]
  - Purpura [Recovered/Resolved]
  - Rash [Recovered/Resolved]
  - Oedema peripheral [None]
  - Blood creatinine increased [Recovered/Resolved]
  - Skin exfoliation [Recovered/Resolved]

NARRATIVE: CASE EVENT DATE: 20130701
